FAERS Safety Report 20869212 (Version 1)
Quarter: 2022Q2

REPORT INFORMATION
  Report Type: Spontaneous
  Country: US (occurrence: None)
  Receive Date: 20220523
  Receipt Date: 20220523
  Transmission Date: 20220721
  Serious: No
  Sender: FDA-Public Use
  Company Number: None

PATIENT
  Sex: Male

DRUGS (2)
  1. GONADORELIN [Suspect]
     Active Substance: GONADORELIN
     Indication: Hormone replacement therapy
     Dosage: OTHER FREQUENCY : TWICE WEEKLY;?
     Route: 058
     Dates: start: 20200812
  2. Testosterone cypionate/anastrozole 200mg/0.5mg/ml [Concomitant]

REACTIONS (6)
  - Rash [None]
  - Rash papular [None]
  - Rash pruritic [None]
  - Recalled product administered [None]
  - Wrong technique in product usage process [None]
  - Haemorrhage [None]
